FAERS Safety Report 16384828 (Version 1)
Quarter: 2019Q2

REPORT INFORMATION
  Report Type: Spontaneous
  Country: GB (occurrence: GB)
  Receive Date: 20190603
  Receipt Date: 20190603
  Transmission Date: 20190711
  Serious: Yes (Death)
  Sender: FDA-Public Use
  Company Number: GB-MYLANLABS-2019M1051370

PATIENT
  Age: 38 Year
  Sex: Male

DRUGS (1)
  1. ACAMPROSATE [Suspect]
     Active Substance: ACAMPROSATE
     Indication: PRODUCT USED FOR UNKNOWN INDICATION
     Dosage: UNK (UNKNOWN DOSAGE AND STRENGTH)

REACTIONS (5)
  - Intra-abdominal haemorrhage [Fatal]
  - Alcoholic liver disease [Fatal]
  - Oesophageal varices haemorrhage [Fatal]
  - Multiple organ dysfunction syndrome [Fatal]
  - Hepatitis C [Fatal]
